FAERS Safety Report 4940873-7 (Version None)
Quarter: 2006Q1

REPORT INFORMATION
  Report Type: 
  Country: None (occurrence: None)
  Receive Date: 20060307
  Receipt Date: 20060220
  Transmission Date: 20060701
  Serious: Yes (Hospitalization, Other)
  Sender: FDA-Public Use
  Company Number: 2006AL000503

PATIENT
  Age: 50 Year
  Sex: Female

DRUGS (12)
  1. DILTIAZEM HCL [Suspect]
  2. DICLOFENAC SODIUM EXTENDED-RELEASE TABLETS, 100 MG (PUREPAC) (DICLOFEN [Suspect]
  3. IBUPROFEN ORAL SUSPENSION USP, 100 MG/5ML (RX) (ALPHARMA) (IBUPROFEN O [Suspect]
  4. EZETIMIBE [Suspect]
     Indication: HYPERLIPIDAEMIA
     Dosage: 10 MG; QD; PO
     Route: 048
  5. FUROSEMIDE [Concomitant]
  6. ATORVASTATIN CALCIUM [Concomitant]
  7. ACETAMINOPHEN [Concomitant]
  8. ATENOLOL [Concomitant]
  9. CLOPIDOGREL [Concomitant]
  10. LACTULOSE [Concomitant]
  11. THROXINE [Concomitant]
  12. NITRATE [Concomitant]

REACTIONS (6)
  - ABDOMINAL PAIN UPPER [None]
  - AUTOIMMUNE HEPATITIS [None]
  - DRUG INTERACTION [None]
  - DYSPEPSIA [None]
  - LUPUS-LIKE SYNDROME [None]
  - PANCREATIC DISORDER [None]
